FAERS Safety Report 16086327 (Version 4)
Quarter: 2024Q3

REPORT INFORMATION
  Report Type: Report from Study
  Country: SK (occurrence: SK)
  Receive Date: 20190318
  Receipt Date: 20240731
  Transmission Date: 20241016
  Serious: Yes (Hospitalization, Other)
  Sender: SANOFI AVENTIS
  Company Number: SK-SA-2019SA053054

PATIENT
  Age: 41 Year
  Sex: Female
  Weight: 57 kg

DRUGS (10)
  1. ALEMTUZUMAB [Suspect]
     Active Substance: ALEMTUZUMAB
     Indication: Relapsing multiple sclerosis
     Dosage: 12 MG, QD
     Route: 041
     Dates: start: 20190211, end: 20190215
  2. DERMS [Concomitant]
     Indication: Prophylaxis
  3. NADROPARIN [Concomitant]
     Active Substance: NADROPARIN
     Indication: Prophylaxis
     Dosage: UNK
     Route: 058
     Dates: start: 20190211, end: 20190215
  4. ACETAMINOPHEN [Concomitant]
     Active Substance: ACETAMINOPHEN
     Indication: Prophylaxis
     Dosage: UNK
     Route: 048
     Dates: start: 20190211, end: 20190215
  5. ACYCLOVIR [Concomitant]
     Active Substance: ACYCLOVIR
     Indication: Prophylaxis
     Dosage: UNK
     Route: 048
     Dates: start: 20190211, end: 20190215
  6. BISULEPIN [Concomitant]
     Active Substance: BISULEPIN
     Indication: Prophylaxis
     Dosage: UNK
     Route: 042
     Dates: start: 20190211, end: 20190215
  7. OMEPRAZOLE [Concomitant]
     Active Substance: OMEPRAZOLE
     Indication: Prophylaxis
     Dosage: UNK
     Route: 048
     Dates: start: 20190211, end: 20190215
  8. METHYLPREDNISOLONE [Concomitant]
     Active Substance: METHYLPREDNISOLONE
     Indication: Prophylaxis
     Dosage: UNK
     Route: 042
     Dates: start: 20190211, end: 20190211
  9. METHYLPREDNISOLONE [Concomitant]
     Active Substance: METHYLPREDNISOLONE
     Dosage: UNK
     Route: 042
     Dates: start: 20190212, end: 20190215
  10. AMOXICILLIN\CLAVULANIC ACID [Concomitant]
     Active Substance: AMOXICILLIN\CLAVULANIC ACID
     Dosage: UNK
     Route: 048
     Dates: start: 20201208, end: 20201215

REACTIONS (26)
  - Graves^ disease [Recovered/Resolved with Sequelae]
  - Paraparesis [Recovered/Resolved]
  - Paraparesis [Recovering/Resolving]
  - Muscular weakness [Recovered/Resolved]
  - Multiple sclerosis relapse [Recovered/Resolved]
  - C-reactive protein increased [Recovered/Resolved]
  - Oral herpes [Recovered/Resolved]
  - Pyrexia [Recovered/Resolved]
  - Leukopenia [Recovered/Resolved]
  - Hypomagnesaemia [Not Recovered/Not Resolved]
  - Spontaneous haematoma [Recovered/Resolved]
  - Tension headache [Recovered/Resolved]
  - Bacteriuria [Recovered/Resolved]
  - Urinary tract infection [Recovered/Resolved]
  - Vulvovaginal mycotic infection [Recovered/Resolved]
  - Gingivitis [Recovered/Resolved]
  - Spinal pain [Recovered/Resolved]
  - Haematoma [Recovered/Resolved]
  - Limb injury [Recovered/Resolved]
  - Detrusor sphincter dyssynergia [Not Recovered/Not Resolved]
  - Skin injury [Recovered/Resolved]
  - Back pain [Recovered/Resolved]
  - Paronychia [Recovered/Resolved]
  - Lymphopenia [Recovered/Resolved]
  - Bacteriuria [Recovered/Resolved]
  - Bacteriuria [Recovering/Resolving]

NARRATIVE: CASE EVENT DATE: 20190211
